FAERS Safety Report 8654566 (Version 5)
Quarter: 2013Q4

REPORT INFORMATION
  Report Type: Spontaneous
  Country: US (occurrence: US)
  Receive Date: 20120615
  Receipt Date: 20131011
  Transmission Date: 20140711
  Serious: Yes (Life-Threatening, Other)
  Sender: FDA-Public Use
  Company Number: US-009507513-2012SP031681

PATIENT
  Age: 52 Year
  Sex: Female
  Weight: 86.82 kg

DRUGS (1)
  1. SAPHRIS [Suspect]
     Indication: SCHIZOPHRENIA
     Dosage: 5 MG, QD
     Route: 060
     Dates: start: 20120304

REACTIONS (10)
  - Acute myocardial infarction [Unknown]
  - Embolic stroke [Unknown]
  - Underdose [Unknown]
  - Back pain [Unknown]
  - Dyspnoea [Unknown]
  - Pain in jaw [Unknown]
  - Electrocardiogram T wave amplitude decreased [Unknown]
  - Nausea [Unknown]
  - Hyperhidrosis [Unknown]
  - Inappropriate schedule of drug administration [Unknown]
